FAERS Safety Report 18585775 (Version 1)
Quarter: 2020Q4

REPORT INFORMATION
  Report Type: Spontaneous
  Country: GB (occurrence: GB)
  Receive Date: 20201207
  Receipt Date: 20201207
  Transmission Date: 20210114
  Serious: Yes (Hospitalization)
  Sender: FDA-Public Use
  Company Number: GB-MYLANLABS-2020M1098677

PATIENT
  Age: 88 Year
  Sex: Female

DRUGS (8)
  1. ATORVASTATIN [Concomitant]
     Active Substance: ATORVASTATIN
     Dosage: AT NIGHT
     Route: 048
  2. ACETYLSALICYLIC ACID [Concomitant]
     Active Substance: ASPIRIN
     Dosage: 75 MILLIGRAM, QD
     Route: 048
  3. TRAMADOL. [Suspect]
     Active Substance: TRAMADOL
     Indication: BACK PAIN
     Dosage: 50MG-100MG UP TO FOUR TIMES DAILY AS REQUIRED. TOOK 50MG PRIOR TO EPISODE
     Route: 048
     Dates: start: 20201018, end: 20201018
  4. SENNA                              /00142201/ [Concomitant]
     Active Substance: SENNA LEAF
     Dosage: 7.5MG-15MG AT NIGHT AS REQUIRED
     Route: 048
  5. DOCUSATE [Concomitant]
     Active Substance: DOCUSATE
     Dosage: 400 MILLIGRAM, QD
     Route: 048
  6. LANSOPRAZOLE. [Concomitant]
     Active Substance: LANSOPRAZOLE
     Dosage: 30 MILLIGRAM, QD
     Route: 048
  7. IBUPROFEN. [Concomitant]
     Active Substance: IBUPROFEN
     Dosage: UP TO THREE TIMES DAILY AS REQUIRED
     Route: 061
     Dates: start: 20201001
  8. BISOPROLOL [Concomitant]
     Active Substance: BISOPROLOL
     Dosage: 2.5 MILLIGRAM, QD
     Route: 048

REACTIONS (3)
  - Facial paresis [Recovered/Resolved]
  - Drooling [Recovered/Resolved]
  - Petit mal epilepsy [Unknown]

NARRATIVE: CASE EVENT DATE: 20201018
